FAERS Safety Report 7294230-1 (Version None)
Quarter: 2011Q1

REPORT INFORMATION
  Report Type: 
  Country: None (occurrence: None)
  Receive Date: 20110215
  Receipt Date: 20110207
  Transmission Date: 20110831
  Serious: Yes (Hospitalization)
  Sender: FDA-Public Use
  Company Number: US-B.I. PHARMACEUTICALS,INC./RIDGEFIELD-2011-BP-00384BP

PATIENT
  Age: 87 Year
  Sex: Female
  Weight: 68.95 kg

DRUGS (1)
  1. PRADAXA [Suspect]
     Dates: end: 20110105

REACTIONS (3)
  - GASTROINTESTINAL HAEMORRHAGE [None]
  - ANAEMIA [None]
  - FATIGUE [None]
